FAERS Safety Report 12747811 (Version 1)
Quarter: 2016Q3

REPORT INFORMATION
  Report Type: Spontaneous
  Country: US (occurrence: US)
  Receive Date: 20160915
  Receipt Date: 20160915
  Transmission Date: 20161109
  Serious: No
  Sender: FDA-Public Use
  Company Number: US-JAZZ-2016-US-010027

PATIENT
  Sex: Male

DRUGS (26)
  1. BACLOFEN. [Concomitant]
     Active Substance: BACLOFEN
  2. TRIAMCINOLONE [Concomitant]
     Active Substance: TRIAMCINOLONE
  3. XYREM [Suspect]
     Active Substance: SODIUM OXYBATE
     Dosage: 3 G, BID
     Route: 048
     Dates: start: 201012, end: 2011
  4. ADDERALL XR [Concomitant]
     Active Substance: AMPHETAMINE ASPARTATE\AMPHETAMINE SULFATE\DEXTROAMPHETAMINE SACCHARATE\DEXTROAMPHETAMINE SULFATE
  5. NEXIUM [Concomitant]
     Active Substance: ESOMEPRAZOLE MAGNESIUM
  6. XYREM [Suspect]
     Active Substance: SODIUM OXYBATE
     Indication: NARCOLEPSY
     Dosage: 2.25 G, BID
     Route: 048
     Dates: start: 201012, end: 201012
  7. XYREM [Suspect]
     Active Substance: SODIUM OXYBATE
     Dosage: 2.25 G, BID
     Route: 048
     Dates: start: 201504, end: 201505
  8. XYREM [Suspect]
     Active Substance: SODIUM OXYBATE
     Dosage: DOSE ADJUSTMENTS
     Route: 048
     Dates: start: 2015, end: 2015
  9. VITAMIN C [Concomitant]
     Active Substance: ASCORBIC ACID
  10. NAPROXEN EC [Concomitant]
     Active Substance: NAPROXEN
  11. CARAFATE [Concomitant]
     Active Substance: SUCRALFATE
  12. MINIPRESS [Concomitant]
     Active Substance: PRAZOSIN HYDROCHLORIDE
  13. DOXEPIN [Concomitant]
     Active Substance: DOXEPIN
  14. DIAZEPAM. [Concomitant]
     Active Substance: DIAZEPAM
  15. VITAMIN D3 [Concomitant]
     Active Substance: CHOLECALCIFEROL
  16. VALIUM [Concomitant]
     Active Substance: DIAZEPAM
  17. LOVAZA [Concomitant]
     Active Substance: OMEGA-3-ACID ETHYL ESTERS
  18. VITAMIN D [Concomitant]
     Active Substance: CHOLECALCIFEROL
  19. XYREM [Suspect]
     Active Substance: SODIUM OXYBATE
     Dosage: 4 G, BID
     Route: 048
     Dates: start: 201512
  20. AIRBORNE [Concomitant]
     Active Substance: HERBALS\MINERALS\VITAMINS
  21. RESTORIL [Concomitant]
     Active Substance: TEMAZEPAM
  22. PERCOCET [Concomitant]
     Active Substance: ACETAMINOPHEN\OXYCODONE HYDROCHLORIDE
  23. ALLERGY [Concomitant]
     Active Substance: UNSPECIFIED INGREDIENT
  24. FLONASE ALLERGY RLF [Concomitant]
  25. PROVIGIL [Concomitant]
     Active Substance: MODAFINIL
  26. ZOFRAN ODT [Concomitant]
     Active Substance: ONDANSETRON HYDROCHLORIDE

REACTIONS (3)
  - Intervertebral disc protrusion [Unknown]
  - Bone disorder [Not Recovered/Not Resolved]
  - Prehypertension [Recovering/Resolving]
